FAERS Safety Report 15008261 (Version 10)
Quarter: 2019Q3

REPORT INFORMATION
  Report Type: Report from Study
  Country: BR (occurrence: BR)
  Receive Date: 20180613
  Receipt Date: 20190919
  Transmission Date: 20191004
  Serious: Yes (Other)
  Sender: FDA-Public Use
  Company Number: PHHY2018BR009608

PATIENT
  Age: 57 Year
  Sex: Female
  Weight: 59 kg

DRUGS (12)
  1. COSENTYX [Suspect]
     Active Substance: SECUKINUMAB
     Dosage: 300 MG, QMO
     Route: 065
     Dates: start: 20190610
  2. COSENTYX [Suspect]
     Active Substance: SECUKINUMAB
     Indication: ANKYLOSING SPONDYLITIS
     Dosage: 150 MG, QW
     Route: 065
     Dates: start: 20180108
  3. COSENTYX [Suspect]
     Active Substance: SECUKINUMAB
     Dosage: UNK
     Route: 065
     Dates: start: 20181212
  4. COSENTYX [Suspect]
     Active Substance: SECUKINUMAB
     Dosage: UNK
     Route: 065
  5. PIROXICAM. [Suspect]
     Active Substance: PIROXICAM
     Indication: PAIN
     Dosage: UNK
     Route: 065
  6. COSENTYX [Suspect]
     Active Substance: SECUKINUMAB
     Dosage: UNK
     Route: 058
     Dates: start: 20181112
  7. METHOTREXATE. [Suspect]
     Active Substance: METHOTREXATE
     Dosage: 6 DF, QW
     Route: 065
  8. COSENTYX [Suspect]
     Active Substance: SECUKINUMAB
     Indication: ARTHRITIS
     Dosage: 150 MG, UNK
     Route: 058
     Dates: start: 20180208
  9. COSENTYX [Suspect]
     Active Substance: SECUKINUMAB
     Dosage: 300 MG, QMO (2 INJECTABLE PENS OF 150 MG)
     Route: 065
  10. COSENTYX [Suspect]
     Active Substance: SECUKINUMAB
     Dosage: UNK
     Route: 058
     Dates: start: 20180507
  11. COSENTYX [Suspect]
     Active Substance: SECUKINUMAB
     Dosage: 1 DF, UNK
     Route: 065
  12. METHOTREXATE. [Suspect]
     Active Substance: METHOTREXATE
     Indication: PAIN
     Dosage: 4 DF, QW
     Route: 065

REACTIONS (39)
  - Pain [Recovered/Resolved]
  - Pigmentation disorder [Not Recovered/Not Resolved]
  - Gait inability [Unknown]
  - Pain in extremity [Not Recovered/Not Resolved]
  - Back pain [Not Recovered/Not Resolved]
  - Joint swelling [Unknown]
  - Hunger [Unknown]
  - Musculoskeletal stiffness [Unknown]
  - Anxiety [Unknown]
  - Product use in unapproved indication [Unknown]
  - Joint stiffness [Unknown]
  - Ocular hyperaemia [Unknown]
  - Weight increased [Unknown]
  - Pruritus [Unknown]
  - Fall [Recovering/Resolving]
  - Dyskinesia [Recovering/Resolving]
  - Fatigue [Unknown]
  - Eye pain [Unknown]
  - Paraesthesia [Unknown]
  - Rheumatoid arthritis [Unknown]
  - Pain [Unknown]
  - Erythema [Unknown]
  - Feeling cold [Unknown]
  - Peripheral coldness [Unknown]
  - Hypoaesthesia [Recovering/Resolving]
  - Back injury [Recovering/Resolving]
  - Memory impairment [Unknown]
  - Conjunctival haemorrhage [Recovered/Resolved]
  - Inflammation [Unknown]
  - Musculoskeletal pain [Not Recovered/Not Resolved]
  - Peripheral swelling [Unknown]
  - Muscle rigidity [Not Recovered/Not Resolved]
  - Joint injury [Recovering/Resolving]
  - Arthropathy [Unknown]
  - Ankylosing spondylitis [Recovered/Resolved]
  - Arthralgia [Not Recovered/Not Resolved]
  - Skin discolouration [Unknown]
  - Body height decreased [Unknown]
  - Drug ineffective [Unknown]

NARRATIVE: CASE EVENT DATE: 201804
